FAERS Safety Report 10753510 (Version 1)
Quarter: 2015Q1

REPORT INFORMATION
  Report Type: Spontaneous
  Country: US (occurrence: US)
  Receive Date: 20150131
  Receipt Date: 20150131
  Transmission Date: 20150721
  Serious: No
  Sender: FDA-Public Use
  Company Number: US-009507513-1501USA011879

PATIENT
  Age: 3 Year
  Sex: Male

DRUGS (1)
  1. CLARITIN [Suspect]
     Active Substance: LORATADINE
     Indication: UPPER-AIRWAY COUGH SYNDROME
     Dosage: UNK, UNKNOWN
     Route: 048
     Dates: start: 20150126

REACTIONS (2)
  - Product use issue [Unknown]
  - Drug ineffective for unapproved indication [Unknown]

NARRATIVE: CASE EVENT DATE: 20150126
